FAERS Safety Report 9206746 (Version 2)
Quarter: 2013Q3

REPORT INFORMATION
  Report Type: Spontaneous
  Country: HU (occurrence: HU)
  Receive Date: 20130403
  Receipt Date: 20130712
  Transmission Date: 20140515
  Serious: Yes (Other)
  Sender: FDA-Public Use
  Company Number: HU-UCBSA-081683

PATIENT
  Age: 36 Year
  Sex: Female
  Weight: 51.5 kg

DRUGS (6)
  1. CIMZIA [Suspect]
     Indication: RHEUMATOID ARTHRITIS
     Route: 058
     Dates: start: 20121203, end: 20130115
  2. CIMZIA [Suspect]
     Indication: RHEUMATOID ARTHRITIS
     Route: 058
     Dates: start: 20121022, end: 20121119
  3. METOJECT [Concomitant]
     Indication: RHEUMATOID ARTHRITIS
     Route: 030
  4. MEDROL [Concomitant]
     Indication: RHEUMATOID ARTHRITIS
     Route: 048
  5. SALAZOPYRIN [Concomitant]
     Indication: RHEUMATOID ARTHRITIS
     Route: 048
  6. VITAMIN D3 [Concomitant]
     Indication: OSTEOPOROSIS
     Dosage: DOSE: 1000 NE ONCE DAILY
     Route: 048

REACTIONS (1)
  - Psoriasis [Recovered/Resolved]
